FAERS Safety Report 14097569 (Version 1)
Quarter: 2017Q4

REPORT INFORMATION
  Report Type: Spontaneous
  Country: US (occurrence: US)
  Receive Date: 20171016
  Receipt Date: 20171016
  Transmission Date: 20180321
  Serious: No
  Sender: FDA-Public Use
  Company Number: US-AMGEN-USASP2016177508

PATIENT
  Age: 60 Year
  Sex: Female
  Weight: 77.64 kg

DRUGS (4)
  1. CLONAZEPAM. [Concomitant]
     Active Substance: CLONAZEPAM
  2. LORTAB [Concomitant]
     Active Substance: ACETAMINOPHEN\HYDROCODONE BITARTRATE
     Indication: BACK PAIN
  3. PROLIA [Suspect]
     Active Substance: DENOSUMAB
     Indication: OSTEOPOROSIS POSTMENOPAUSAL
     Dosage: UNK UNK, Q12MO
     Route: 065
     Dates: start: 20150618, end: 20160929
  4. PROLIA [Suspect]
     Active Substance: DENOSUMAB
     Dosage: UNK UNK, Q12MO
     Route: 065
     Dates: start: 201608

REACTIONS (12)
  - Decreased appetite [Unknown]
  - Inappropriate schedule of drug administration [Unknown]
  - Ear disorder [Unknown]
  - Pain in jaw [Unknown]
  - Tooth fracture [Unknown]
  - Sinus disorder [Unknown]
  - Nausea [Not Recovered/Not Resolved]
  - Abdominal pain upper [Unknown]
  - Back pain [Not Recovered/Not Resolved]
  - Hot flush [Recovering/Resolving]
  - Diarrhoea [Not Recovered/Not Resolved]
  - Temporomandibular joint syndrome [Not Recovered/Not Resolved]

NARRATIVE: CASE EVENT DATE: 20160719
